FAERS Safety Report 13757826 (Version 4)
Quarter: 2018Q2

REPORT INFORMATION
  Report Type: Report from Study
  Country: JP (occurrence: JP)
  Receive Date: 20170717
  Receipt Date: 20180629
  Transmission Date: 20180711
  Serious: Yes (Death, Life-Threatening, Other)
  Sender: FDA-Public Use
  Company Number: JP-ROCHE-1963230

PATIENT

DRUGS (9)
  1. BASILIXIMAB [Suspect]
     Active Substance: BASILIXIMAB
     Indication: PROPHYLAXIS AGAINST TRANSPLANT REJECTION
     Dosage: 0-4 DAYS
     Route: 065
  2. EVEROLIMUS. [Concomitant]
     Active Substance: EVEROLIMUS
  3. RITUXIMAB. [Suspect]
     Active Substance: RITUXIMAB
     Indication: LYMPHOMA
     Dosage: 200 MG PER BODY
     Route: 042
  4. CYCLOSPORIN A [Suspect]
     Active Substance: CYCLOSPORINE
     Indication: PROPHYLAXIS AGAINST TRANSPLANT REJECTION
     Route: 065
  5. METHYLPREDNISOLONE. [Suspect]
     Active Substance: METHYLPREDNISOLONE
     Indication: PROPHYLAXIS AGAINST TRANSPLANT REJECTION
     Route: 065
  6. RITUXIMAB. [Suspect]
     Active Substance: RITUXIMAB
     Indication: RENAL TRANSPLANT
  7. MYCOPHENOLATE MOFETIL. [Suspect]
     Active Substance: MYCOPHENOLATE MOFETIL
     Indication: PROPHYLAXIS AGAINST TRANSPLANT REJECTION
     Route: 065
  8. TACROLIMUS. [Suspect]
     Active Substance: TACROLIMUS
     Indication: PROPHYLAXIS AGAINST TRANSPLANT REJECTION
     Route: 065
  9. MIZORIBINE [Concomitant]
     Active Substance: MIZORIBINE

REACTIONS (25)
  - Cardiomyopathy [Unknown]
  - Pulmonary embolism [Unknown]
  - Cardiac failure [Unknown]
  - Liver disorder [Unknown]
  - Neoplasm malignant [Fatal]
  - Sepsis [Unknown]
  - Polyomavirus-associated nephropathy [Unknown]
  - Arrhythmia [Unknown]
  - Aortic dissection [Unknown]
  - Pericardial disease [Unknown]
  - Infection [Fatal]
  - Pneumonia [Unknown]
  - Coronary artery disease [Unknown]
  - Cardiovascular disorder [Fatal]
  - Neutropenia [Unknown]
  - Cytomegalovirus infection [Unknown]
  - Cardiac valve disease [Unknown]
  - Drug-induced liver injury [Unknown]
  - Cerebrovascular accident [Unknown]
  - Gastrointestinal disorder [Fatal]
  - Hepatitis B reactivation [Unknown]
  - Deep vein thrombosis [Unknown]
  - Venous thrombosis [Unknown]
  - Diabetes mellitus [Unknown]
  - Cerebrovascular disorder [Unknown]
